FAERS Safety Report 16321567 (Version 1)
Quarter: 2019Q2

REPORT INFORMATION
  Report Type: Report from Study
  Country: US (occurrence: US)
  Receive Date: 20190516
  Receipt Date: 20190516
  Transmission Date: 20190711
  Serious: Yes (Disabling)
  Sender: FDA-Public Use
  Company Number: US-VERASTEM-2018-00085

PATIENT

DRUGS (6)
  1. IPI-145 [Suspect]
     Active Substance: DUVELISIB
     Indication: T-CELL LYMPHOMA
     Dosage: 25 MG, BID
     Route: 048
     Dates: start: 20180621, end: 20180815
  2. BORTEZOMIB. [Suspect]
     Active Substance: BORTEZOMIB
     Indication: T-CELL LYMPHOMA
     Dosage: 2.2 MG, DAY 1, 4, 8, AND 11 OF EACH CYCLE
     Route: 058
     Dates: start: 20180621, end: 20180815
  3. GABAPENTIN. [Concomitant]
     Active Substance: GABAPENTIN
     Indication: PRODUCT USED FOR UNKNOWN INDICATION
     Dosage: 300 MG, QD (AT NIGHT)
     Dates: start: 20180531, end: 20180830
  4. GABAPENTIN. [Concomitant]
     Active Substance: GABAPENTIN
     Dosage: 300 MG, TID
     Dates: start: 20180831, end: 20180907
  5. GABAPENTIN. [Concomitant]
     Active Substance: GABAPENTIN
     Dosage: 600 MG, TID
     Dates: start: 20180907
  6. VALTREX [Concomitant]
     Active Substance: VALACYCLOVIR HYDROCHLORIDE
     Indication: PRODUCT USED FOR UNKNOWN INDICATION
     Dosage: 1000 MG, TID
     Dates: start: 20180816

REACTIONS (2)
  - Peripheral motor neuropathy [Recovered/Resolved]
  - Peripheral sensory neuropathy [Recovered/Resolved]

NARRATIVE: CASE EVENT DATE: 20180830
